FAERS Safety Report 6133152-6 (Version None)
Quarter: 2009Q1

REPORT INFORMATION
  Report Type: 
  Country: None (occurrence: None)
  Receive Date: 20090325
  Receipt Date: 20090325
  Transmission Date: 20090719
  Serious: No
  Sender: FDA-Public Use
  Company Number: None

PATIENT
  Sex: Female
  Weight: 70.2 kg

DRUGS (1)
  1. MODAFINIL [Suspect]
     Dosage: 200MG TWICE A DAY PO
     Route: 048
     Dates: start: 20090214, end: 20090302

REACTIONS (1)
  - LIVER FUNCTION TEST ABNORMAL [None]
